FAERS Safety Report 13214529 (Version 1)
Quarter: 2017Q1

REPORT INFORMATION
  Report Type: Spontaneous
  Country: NO (occurrence: NO)
  Receive Date: 20170210
  Receipt Date: 20170210
  Transmission Date: 20170428
  Serious: Yes (Life-Threatening, Other)
  Sender: FDA-Public Use
  Company Number: NO-ABBVIE-17P-122-1867266-00

PATIENT
  Sex: Male

DRUGS (1)
  1. HUMIRA [Suspect]
     Active Substance: ADALIMUMAB
     Indication: PRODUCT USED FOR UNKNOWN INDICATION
     Route: 058
     Dates: start: 2014, end: 2014

REACTIONS (12)
  - Pain [Unknown]
  - Weight decreased [Unknown]
  - Suicidal ideation [Unknown]
  - Feeling abnormal [Unknown]
  - Pneumonia [Unknown]
  - Decreased appetite [Unknown]
  - Acne [Unknown]
  - Malaise [Unknown]
  - Infection [Unknown]
  - Bacterial infection [Unknown]
  - Syncope [Unknown]
  - Insomnia [Unknown]

NARRATIVE: CASE EVENT DATE: 2016
